FAERS Safety Report 6394677-1 (Version None)
Quarter: 2009Q4

REPORT INFORMATION
  Report Type: 
  Country: None (occurrence: None)
  Receive Date: 20091009
  Receipt Date: 20090929
  Transmission Date: 20100525
  Serious: Yes (Hospitalization, Other)
  Sender: FDA-Public Use
  Company Number: CA-JNJFOC-20091000211

PATIENT
  Age: 77 Year
  Sex: Male
  Weight: 70.31 kg

DRUGS (11)
  1. REMICADE [Suspect]
     Indication: RHEUMATOID ARTHRITIS
     Route: 042
     Dates: start: 20000524
  2. METHOTREXATE [Suspect]
     Indication: RHEUMATOID ARTHRITIS
     Route: 048
  3. COUMADIN [Concomitant]
  4. ALTACE [Concomitant]
  5. SOTALOL [Concomitant]
  6. HYDRODIURIL [Concomitant]
  7. METOPROLOL SUCCINATE [Concomitant]
  8. RAMIPRIL [Concomitant]
  9. ACTONEL [Concomitant]
  10. FOLIC ACID [Concomitant]
  11. PANTOPRAZOLE [Concomitant]

REACTIONS (1)
  - PANCREATIC CARCINOMA [None]
